FAERS Safety Report 5592764-9 (Version None)
Quarter: 2007Q4

REPORT INFORMATION
  Report Type: 
  Country: None (occurrence: None)
  Receive Date: 20071217
  Receipt Date: 20071025
  Transmission Date: 20080405
  Serious: No
  Sender: FDA-Public Use
  Company Number: BDI-010423

PATIENT
  Age: 84 Year
  Sex: Female

DRUGS (1)
  1. MULTIHANCE [Suspect]
     Indication: ORBITAL OEDEMA
     Dosage: 10 ML ONCE IV
     Route: 042
     Dates: start: 20070909, end: 20070909

REACTIONS (1)
  - ANAPHYLACTOID REACTION [None]
